FAERS Safety Report 13332370 (Version 1)
Quarter: 2017Q1

REPORT INFORMATION
  Report Type: Report from Study
  Country: BR (occurrence: BR)
  Receive Date: 20170314
  Receipt Date: 20170314
  Transmission Date: 20170428
  Serious: Yes (Disabling, Other)
  Sender: FDA-Public Use
  Company Number: PHHY2017BR038355

PATIENT
  Sex: Female

DRUGS (1)
  1. ACLASTA [Suspect]
     Active Substance: ZOLEDRONIC ACID
     Indication: PRODUCT USED FOR UNKNOWN INDICATION
     Route: 065

REACTIONS (3)
  - Paralysis [Recovered/Resolved with Sequelae]
  - Cerebrovascular accident [Recovered/Resolved with Sequelae]
  - Aphasia [Unknown]

NARRATIVE: CASE EVENT DATE: 20150708
